APPROVED DRUG PRODUCT: SPINRAZA
Active Ingredient: NUSINERSEN SODIUM
Strength: EQ 12MG BASE/5ML (EQ 2.4MG BASE/ML)
Dosage Form/Route: SOLUTION;INTRATHECAL
Application: N209531 | Product #001
Applicant: BIOGEN IDEC INC
Approved: Dec 23, 2016 | RLD: Yes | RS: Yes | Type: RX

PATENTS:
Patent 9717750 | Expires: Jun 17, 2030
Patent 9717750 | Expires: Jun 17, 2030
Patent 9717750 | Expires: Jun 17, 2030
Patent 10436802 | Expires: Sep 11, 2035
Patent 10436802 | Expires: Sep 11, 2035
Patent 10436802 | Expires: Sep 11, 2035
Patent 10436802 | Expires: Sep 11, 2035
Patent 10436802 | Expires: Sep 11, 2035
Patent 10436802 | Expires: Sep 11, 2035
Patent 9717750 | Expires: Jun 17, 2030
Patent 9926559 | Expires: Jan 9, 2034
Patent 12013403 | Expires: Mar 4, 2036
Patent 12013403 | Expires: Mar 4, 2036
Patent 12013403 | Expires: Mar 4, 2036
Patent 12013403 | Expires: Mar 4, 2036
Patent 12013403 | Expires: Mar 4, 2036
Patent 12013403 | Expires: Mar 4, 2036
Patent 8980853 | Expires: Nov 24, 2030
Patent 8361977 | Expires: Dec 23, 2030
Patent 7838657 | Expires: Jul 11, 2027